FAERS Safety Report 5567085-0 (Version None)
Quarter: 2007Q4

REPORT INFORMATION
  Report Type: 
  Country: None (occurrence: None)
  Receive Date: 20071219
  Receipt Date: 20061222
  Transmission Date: 20080405
  Serious: Yes (Death, Other)
  Sender: FDA-Public Use
  Company Number: DE-ROCHE-445006

PATIENT
  Age: 52 Year
  Sex: Female
  Weight: 57 kg

DRUGS (4)
  1. VALCYTE [Suspect]
     Route: 048
     Dates: start: 20050327, end: 20050417
  2. VALCYTE [Suspect]
     Route: 048
     Dates: start: 20050418, end: 20050501
  3. VALCYTE [Suspect]
     Route: 048
     Dates: start: 20050502
  4. CELLCEPT [Concomitant]
     Dates: end: 20050408

REACTIONS (5)
  - BLOOD CREATININE INCREASED [None]
  - MULTI-ORGAN FAILURE [None]
  - RENAL FAILURE [None]
  - THROMBOCYTOPENIA [None]
  - WHITE BLOOD CELL COUNT DECREASED [None]
